FAERS Safety Report 8386238-X (Version None)
Quarter: 2012Q2

REPORT INFORMATION
  Report Type: 
  Country: None (occurrence: None)
  Receive Date: 20120525
  Receipt Date: 20120521
  Transmission Date: 20120825
  Serious: Yes (Other)
  Sender: FDA-Public Use
  Company Number: TW-PFIZER INC-2012122033

PATIENT
  Age: 67 Year
  Sex: Female

DRUGS (2)
  1. PREMARIN [Suspect]
     Indication: OFF LABEL USE
     Dosage: 0.625 MG, 1X/DAY
     Route: 048
     Dates: start: 19980101, end: 20080101
  2. PREMARIN [Suspect]
     Indication: CARDIAC DISORDER
     Dosage: 0.625 MG QD
     Route: 048
     Dates: start: 20080101

REACTIONS (6)
  - CAROTID ARTERY OCCLUSION [None]
  - EMOTIONAL DISORDER [None]
  - DEPRESSION [None]
  - ISCHAEMIC STROKE [None]
  - HYPERTENSION [None]
  - INSOMNIA [None]
